FAERS Safety Report 14347044 (Version 1)
Quarter: 2018Q1

REPORT INFORMATION
  Report Type: Spontaneous
  Country: CN (occurrence: CN)
  Receive Date: 20180103
  Receipt Date: 20180103
  Transmission Date: 20180509
  Serious: Yes (Other)
  Sender: FDA-Public Use
  Company Number: CN-PFIZER INC-2018002226

PATIENT
  Age: 77 Year
  Sex: Male
  Weight: 65 kg

DRUGS (1)
  1. SOLU-MEDROL [Suspect]
     Active Substance: METHYLPREDNISOLONE SODIUM SUCCINATE
     Indication: LUNG INFECTION
     Dosage: 40 MG, 2X/DAY
     Route: 041
     Dates: start: 20171121, end: 20171123

REACTIONS (3)
  - Delirium [Recovered/Resolved]
  - Halo vision [Recovered/Resolved]
  - Dysphoria [Recovered/Resolved]

NARRATIVE: CASE EVENT DATE: 20171123
